FAERS Safety Report 9323969 (Version 4)
Quarter: 2013Q3

REPORT INFORMATION
  Report Type: Spontaneous
  Country: IT (occurrence: IT)
  Receive Date: 20130603
  Receipt Date: 20130712
  Transmission Date: 20140515
  Serious: Yes (Death, Other)
  Sender: FDA-Public Use
  Company Number: IT-BRISTOL-MYERS SQUIBB COMPANY-18935478

PATIENT
  Age: 89 Year
  Sex: Female

DRUGS (11)
  1. COUMADIN TABS 5 MG [Suspect]
     Indication: ATRIAL FIBRILLATION
     Dosage: 1DF:0.5 UNIT
     Route: 048
     Dates: start: 20110101, end: 20130321
  2. DIFLUCAN [Interacting]
     Indication: URINARY TRACT INFECTION FUNGAL
     Dosage: DIFLUCAN 100 MG CAPS
     Route: 048
     Dates: start: 20130316
  3. LEVOXACIN [Interacting]
     Indication: PLEURAL EFFUSION
     Dosage: LEVOXACIN 5 MG/ML INFUSION SOLUTION?1DF:1UNIT
     Route: 042
     Dates: start: 20130316
  4. TAZOCIN [Interacting]
     Indication: PLEURAL EFFUSION
     Dosage: TAZOCIN 2GR + 0.250 GR/4ML INJECTION SOLUTION?INTERRUPTED ON 27MAR13
     Route: 042
     Dates: start: 20130316
  5. ALBUMIN [Concomitant]
  6. LASIX [Concomitant]
     Dosage: TABS
  7. HUMALOG [Concomitant]
  8. NITRO-DUR [Concomitant]
  9. TEFAMIN [Concomitant]
  10. LANSOX [Concomitant]
     Dosage: CAPS
  11. LUVION [Concomitant]

REACTIONS (6)
  - Cardiac failure [Fatal]
  - Lumbar vertebral fracture [Fatal]
  - Acute respiratory failure [Fatal]
  - Pneumonia [Fatal]
  - International normalised ratio increased [Unknown]
  - Drug interaction [Unknown]
